FAERS Safety Report 6767730-8 (Version None)
Quarter: 2010Q2

REPORT INFORMATION
  Report Type: 
  Country: None (occurrence: None)
  Receive Date: 20100614
  Receipt Date: 20100607
  Transmission Date: 20101027
  Serious: Yes (Disabling)
  Sender: FDA-Public Use
  Company Number: CA-ASTRAZENECA-2010SE26578

PATIENT
  Age: 72 Year
  Sex: Female
  Weight: 86.2 kg

DRUGS (13)
  1. CRESTOR [Suspect]
     Route: 048
  2. ADVAIR DISKUS 100/50 [Concomitant]
  3. ALERTEC [Concomitant]
  4. ALTACE [Concomitant]
  5. METOPROLOL SUCCINATE [Concomitant]
  6. ARTHROTEC [Concomitant]
  7. ASPIRIN [Concomitant]
  8. CALCIUM CITRATE [Concomitant]
  9. FOSAMAX [Concomitant]
  10. LOSEC I.V. [Concomitant]
  11. TYLENOL W/ CODEINE NO. 3 [Concomitant]
  12. VENTOLIN [Concomitant]
  13. VITAMIN B [Concomitant]

REACTIONS (3)
  - BACK PAIN [None]
  - MUSCULAR WEAKNESS [None]
  - MYALGIA [None]
